FAERS Safety Report 12921413 (Version 1)
Quarter: 2016Q4

REPORT INFORMATION
  Report Type: Spontaneous
  Country: JP (occurrence: JP)
  Receive Date: 20161108
  Receipt Date: 20161108
  Transmission Date: 20170207
  Serious: Yes (Death)
  Sender: FDA-Public Use
  Company Number: JP-GUERBET LLC-1059325

PATIENT
  Sex: Male

DRUGS (1)
  1. OPTIRAY PBP [Suspect]
     Active Substance: IOVERSOL
     Indication: COMPUTERISED TOMOGRAM ABDOMEN
     Route: 042
     Dates: start: 20161026, end: 20161026

REACTIONS (4)
  - Cardiac arrest [Fatal]
  - Dyspnoea [Fatal]
  - Blood pressure decreased [Fatal]
  - Nausea [Fatal]

NARRATIVE: CASE EVENT DATE: 20161026
